FAERS Safety Report 4979638-9 (Version None)
Quarter: 2006Q2

REPORT INFORMATION
  Report Type: 
  Country: None (occurrence: None)
  Receive Date: 20060418
  Receipt Date: 20060407
  Transmission Date: 20061013
  Serious: Yes (Hospitalization)
  Sender: FDA-Public Use
  Company Number: MEDI-0004382

PATIENT
  Age: 2 Month
  Sex: 0
  Weight: 3.18 kg

DRUGS (3)
  1. SYNAGIS [Suspect]
     Indication: ANTIVIRAL PROPHYLAXIS
     Dosage: 50 MG, 1 IN  30 D, INTRAMUSCULAR; SEE IMAGE
     Route: 030
     Dates: start: 20060102, end: 20060123
  2. SYNAGIS [Suspect]
     Indication: ANTIVIRAL PROPHYLAXIS
     Dosage: 50 MG, 1 IN  30 D, INTRAMUSCULAR; SEE IMAGE
     Route: 030
     Dates: start: 20060222, end: 20060222
  3. SYNAGIS [Suspect]
     Indication: ANTIVIRAL PROPHYLAXIS
     Dosage: 50 MG, 1 IN  30 D, INTRAMUSCULAR; SEE IMAGE
     Route: 030
     Dates: start: 20060102

REACTIONS (1)
  - BRONCHIOLITIS [None]
